FAERS Safety Report 9798248 (Version 1)
Quarter: 2014Q1

REPORT INFORMATION
  Report Type: Spontaneous
  Country: US (occurrence: None)
  Receive Date: 20140103
  Receipt Date: 20140103
  Transmission Date: 20141002
  Serious: No
  Sender: FDA-Public Use
  Company Number: None

PATIENT
  Age: 46 Year
  Sex: Male
  Weight: 74.39 kg

DRUGS (1)
  1. WELLBUTRIN [Suspect]
     Indication: DEPRESSION
     Dosage: WELLBUTRIN  ONCE DAILY  TAKEN BY MOUTH
     Route: 048

REACTIONS (3)
  - Depression [None]
  - Disease recurrence [None]
  - Product formulation issue [None]
